FAERS Safety Report 4470334-3 (Version None)
Quarter: 2004Q3

REPORT INFORMATION
  Report Type: 
  Country: None (occurrence: None)
  Receive Date: 20040910
  Receipt Date: 20040603
  Transmission Date: 20050211
  Serious: No
  Sender: FDA-Public Use
  Company Number: 2004-00022

PATIENT
  Age: 75 Year
  Sex: Female

DRUGS (2)
  1. VELCADE [Suspect]
     Indication: MULTIPLE MYELOMA
     Dosage: 2/WEEK, IV BOLUS
     Route: 040
     Dates: start: 20040401, end: 20040528
  2. ANTIHYPERTENSIVES [Concomitant]

REACTIONS (2)
  - CONSTIPATION [None]
  - MALAISE [None]
